FAERS Safety Report 8452020-8 (Version None)
Quarter: 2012Q2

REPORT INFORMATION
  Report Type: 
  Country: None (occurrence: None)
  Receive Date: 20120620
  Receipt Date: 20120611
  Transmission Date: 20120825
  Serious: Yes (Hospitalization)
  Sender: FDA-Public Use
  Company Number: US-ASTRAZENECA-2010SE25190

PATIENT
  Age: 57 Year
  Sex: Female

DRUGS (2)
  1. NEXIUM [Suspect]
     Route: 048
  2. AMATESIA [Concomitant]
     Indication: BOWEL MOVEMENT IRREGULARITY

REACTIONS (6)
  - AORTIC VALVE CALCIFICATION [None]
  - GASTROOESOPHAGEAL REFLUX DISEASE [None]
  - DYSPNOEA [None]
  - CARDIAC DISORDER [None]
  - DYSGRAPHIA [None]
  - FEELING ABNORMAL [None]
